FAERS Safety Report 6303987-5 (Version None)
Quarter: 2009Q3

REPORT INFORMATION
  Report Type: 
  Country: None (occurrence: None)
  Receive Date: 20090810
  Receipt Date: 20090731
  Transmission Date: 20100115
  Serious: Yes (Hospitalization, Disabling)
  Sender: FDA-Public Use
  Company Number: CH-PFIZER INC-2009248454

PATIENT
  Age: 75 Year

DRUGS (4)
  1. SORTIS [Suspect]
     Dosage: 10 MG, 1X/DAY
     Route: 048
     Dates: start: 20070801, end: 20080801
  2. SORTIS [Suspect]
     Dosage: 20 MG, 1X/DAY
     Route: 048
     Dates: start: 20080801, end: 20081112
  3. PANTOZOL [Concomitant]
     Dosage: 40 MG, 1X/DAY
     Route: 048
  4. ACETYLSALICYLIC ACID [Concomitant]
     Dosage: 100 MG, 1X/DAY
     Route: 048

REACTIONS (6)
  - HYPOACUSIS [None]
  - MYALGIA [None]
  - PARAESTHESIA [None]
  - PAROSMIA [None]
  - POLYNEUROPATHY [None]
  - VISUAL IMPAIRMENT [None]
